FAERS Safety Report 4401551-6 (Version None)
Quarter: 2004Q3

REPORT INFORMATION
  Report Type: 
  Country: None (occurrence: None)
  Receive Date: 20040714
  Receipt Date: 20040625
  Transmission Date: 20050211
  Serious: Yes (Hospitalization, Other)
  Sender: FDA-Public Use
  Company Number: USA040671200

PATIENT
  Age: 75 Year
  Sex: Female

DRUGS (5)
  1. FORTEO [Suspect]
     Indication: OSTEOPOROSIS
     Dates: start: 20040201
  2. SINGULAIR (MONTELUKAST) [Concomitant]
  3. LEVOXYL [Concomitant]
  4. PREVACID (LANSOPRAZOLE) C [Concomitant]
  5. CELEBREX (CELELCOXIB) [Concomitant]

REACTIONS (17)
  - ASTHENIA [None]
  - BALANCE DISORDER [None]
  - BLOOD CHOLESTEROL ABNORMAL [None]
  - BLOOD PRESSURE DECREASED [None]
  - BLOOD PRESSURE FLUCTUATION [None]
  - DIZZINESS [None]
  - DYSGRAPHIA [None]
  - DYSPNOEA [None]
  - FEELING HOT [None]
  - HEADACHE [None]
  - MOVEMENT DISORDER [None]
  - MYOCARDIAL INFARCTION [None]
  - NAUSEA [None]
  - PHARMACEUTICAL PRODUCT COMPLAINT [None]
  - SPEECH DISORDER [None]
  - SYNCOPE [None]
  - TREMOR [None]
